FAERS Safety Report 16702916 (Version 1)
Quarter: 2019Q3

REPORT INFORMATION
  Report Type: Spontaneous
  Country: US (occurrence: US)
  Receive Date: 20190814
  Receipt Date: 20190814
  Transmission Date: 20191004
  Serious: Yes (Hospitalization)
  Sender: FDA-Public Use
  Company Number: US-PACIRA-201900270

PATIENT

DRUGS (11)
  1. ACETAMINOPHEN. [Concomitant]
     Active Substance: ACETAMINOPHEN
     Indication: PAIN MANAGEMENT
     Dosage: POSTOPERATIVE
     Route: 048
  2. GABAPENTIN. [Concomitant]
     Active Substance: GABAPENTIN
     Indication: PAIN MANAGEMENT
     Dosage: PREOPERATIVE
  3. LORAZEPAM. [Concomitant]
     Active Substance: LORAZEPAM
     Indication: PAIN MANAGEMENT
     Dosage: POSTOPERATIVE AS NEEDED
     Route: 042
  4. DEXAMETHASONE. [Concomitant]
     Active Substance: DEXAMETHASONE
     Indication: PAIN MANAGEMENT
     Dosage: PERIOPERATIVE
     Route: 042
  5. BUPIVACAINE. [Suspect]
     Active Substance: BUPIVACAINE
     Indication: POSTOPERATIVE ANALGESIA
     Dosage: 60ML OF .25% BUPIVACAINE DILUTED WITH 40ML OF SALINE FOR A TOTAL OF 100ML
  6. ACETAMINOPHEN. [Concomitant]
     Active Substance: ACETAMINOPHEN
     Indication: PAIN MANAGEMENT
     Dosage: PREOPERATIVE
  7. HYOSCINE [Concomitant]
     Active Substance: SCOPOLAMINE
     Indication: NAUSEA
     Dosage: PERIOPERATIVE
  8. KETOROLAC [Concomitant]
     Active Substance: KETOROLAC TROMETHAMINE
     Indication: PAIN MANAGEMENT
     Dosage: POSTOPERATIVE
     Route: 042
  9. EXPAREL [Suspect]
     Active Substance: BUPIVACAINE
     Indication: POSTOPERATIVE ANALGESIA
     Dosage: 20 ML OF LB DILUTED WITH 60 ML OF .25% BUPIVACAINE AND 20 ML OF SALINE FOR A TOTAL OF 100 ML
  10. SALINE [Suspect]
     Active Substance: SODIUM CHLORIDE
     Indication: POSTOPERATIVE ANALGESIA
  11. MELATONIN [Concomitant]
     Active Substance: MELATONIN
     Indication: PAIN MANAGEMENT
     Dosage: PERIOPERATIVE
     Route: 048

REACTIONS (5)
  - Abdominal pain [Unknown]
  - Anastomotic stenosis [Unknown]
  - Haemorrhage [Unknown]
  - Hypophagia [Unknown]
  - Portal vein thrombosis [Unknown]
